FAERS Safety Report 8903661 (Version 2)
Quarter: 2012Q4

REPORT INFORMATION
  Report Type: Report from Study
  Country: DE (occurrence: DE)
  Receive Date: 20121112
  Receipt Date: 20121114
  Transmission Date: 20130627
  Serious: Yes (Death, Hospitalization)
  Sender: FDA-Public Use
  Company Number: PHHO2012DE010745

PATIENT
  Age: 67 Year
  Sex: Female
  Weight: 46 kg

DRUGS (6)
  1. EVEROLIMUS [Suspect]
     Indication: NON-SMALL CELL LUNG CANCER
     Dosage: 7.5 mg, QD
     Route: 048
     Dates: start: 20120601, end: 20120720
  2. DEXAMETHASONE [Suspect]
  3. SORAFENIB [Suspect]
     Indication: NON-SMALL CELL LUNG CANCER
     Dosage: 800 mg, BID
     Route: 048
     Dates: start: 20120615, end: 20120719
  4. CORTICOSTEROIDS [Suspect]
  5. METODURA [Concomitant]
     Indication: HYPERTENSION
     Dosage: 50 mg, QD
     Route: 048
     Dates: start: 20120606, end: 20120719
  6. ATACAND [Concomitant]
     Indication: HYPERTENSION
     Dosage: 16 mg, QD
     Route: 048
     Dates: start: 20120606, end: 20120719

REACTIONS (1)
  - Pseudomonas bronchitis [Fatal]
